FAERS Safety Report 25842665 (Version 2)
Quarter: 2025Q4

REPORT INFORMATION
  Report Type: Spontaneous
  Country: AR (occurrence: GB)
  Receive Date: 20250924
  Receipt Date: 20251001
  Transmission Date: 20260118
  Serious: Yes (Hospitalization, Other)
  Sender: MYLAN
  Company Number: AR-MYLANLABS-2025M1078575

PATIENT
  Age: 43 Year
  Sex: Male

DRUGS (2)
  1. CLOZAPINE [Suspect]
     Active Substance: CLOZAPINE
     Indication: Product used for unknown indication
     Dosage: 500 MILLIGRAM, QD
     Dates: start: 20230101
  2. CLOZAPINE [Suspect]
     Active Substance: CLOZAPINE
     Dosage: 1.75 DOSAGE FORM, QD (STRENGTH: 100 MG)

REACTIONS (4)
  - Mental disorder [Unknown]
  - Drug abuse [Unknown]
  - Alcohol abuse [Unknown]
  - Neutropenia [Recovered/Resolved]

NARRATIVE: CASE EVENT DATE: 20250911
